FAERS Safety Report 20381833 (Version 1)
Quarter: 2022Q1

REPORT INFORMATION
  Report Type: Spontaneous
  Country: US (occurrence: None)
  Receive Date: 20220126
  Receipt Date: 20220126
  Transmission Date: 20220423
  Serious: Yes (Hospitalization)
  Sender: FDA-Public Use
  Company Number: None

PATIENT
  Age: 58 Year
  Sex: Male

DRUGS (1)
  1. AFINITOR [Suspect]
     Active Substance: EVEROLIMUS
     Dosage: FREQUENCY : DAILY;?
     Route: 048
     Dates: start: 202112

REACTIONS (6)
  - Sepsis [None]
  - Intestinal obstruction [None]
  - Pneumonia [None]
  - Headache [None]
  - Burning sensation [None]
  - Abdominal pain upper [None]

NARRATIVE: CASE EVENT DATE: 20220112
